FAERS Safety Report 5570435-2 (Version None)
Quarter: 2007Q4

REPORT INFORMATION
  Report Type: 
  Country: None (occurrence: None)
  Receive Date: 20071221
  Receipt Date: 20071207
  Transmission Date: 20080405
  Serious: Yes (Other)
  Sender: FDA-Public Use
  Company Number: US-BAYER-200716248NA

PATIENT
  Age: 17 Year
  Sex: Female
  Weight: 54 kg

DRUGS (3)
  1. YAZ [Suspect]
     Indication: ACNE
     Dates: start: 20060101
  2. MINOCYCLINE HYDROCHLORIDE [Concomitant]
     Indication: ACNE
     Dates: start: 20070901
  3. CERVICAL CANCER VACCINE (NOS) [Concomitant]

REACTIONS (1)
  - ALOPECIA [None]
